FAERS Safety Report 21258834 (Version 1)
Quarter: 2022Q3

REPORT INFORMATION
  Report Type: Spontaneous
  Country: BR (occurrence: BR)
  Receive Date: 20220826
  Receipt Date: 20220826
  Transmission Date: 20221027
  Serious: Yes (Other)
  Sender: FDA-Public Use
  Company Number: BR-JNJFOC-20220845662

PATIENT
  Age: 62 Year
  Sex: Male
  Weight: 62 kg

DRUGS (3)
  1. REMICADE [Suspect]
     Active Substance: INFLIXIMAB
     Indication: Ankylosing spondylitis
     Route: 041
     Dates: start: 20170201
  2. ERGOCALCIFEROL [Concomitant]
     Active Substance: ERGOCALCIFEROL
  3. RETINOL ACETATE [Concomitant]

REACTIONS (7)
  - Immunodeficiency [Unknown]
  - Ankylosing spondylitis [Unknown]
  - Platelet count decreased [Unknown]
  - Tremor [Unknown]
  - Nervousness [Unknown]
  - COVID-19 [Unknown]
  - Drug ineffective [Unknown]
